FAERS Safety Report 23070469 (Version 1)
Quarter: 2023Q4

REPORT INFORMATION
  Report Type: Spontaneous
  Country: PL (occurrence: PL)
  Receive Date: 20231016
  Receipt Date: 20231016
  Transmission Date: 20240110
  Serious: Yes (Other)
  Sender: FDA-Public Use
  Company Number: PL-TEVA-2023-PL-2935416

PATIENT
  Age: 62 Year
  Sex: Female

DRUGS (3)
  1. CLORAZEPATE DIPOTASSIUM [Suspect]
     Active Substance: CLORAZEPATE DIPOTASSIUM
     Indication: Product used for unknown indication
     Dosage: 2.5 MILLIGRAM DAILY;
     Route: 065
     Dates: start: 2013
  2. CLORAZEPATE DIPOTASSIUM [Suspect]
     Active Substance: CLORAZEPATE DIPOTASSIUM
     Dosage: 2.5 MILLIGRAM DAILY;
     Route: 065
  3. ESCITALOPRAM OXALATE [Concomitant]
     Active Substance: ESCITALOPRAM OXALATE
     Indication: Anxiety disorder
     Dosage: 20 MILLIGRAM DAILY;

REACTIONS (3)
  - Drug dependence [Recovered/Resolved]
  - Muscle spasms [Unknown]
  - Drug withdrawal syndrome [Recovered/Resolved]

NARRATIVE: CASE EVENT DATE: 20230801
